FAERS Safety Report 21697364 (Version 2)
Quarter: 2023Q1

REPORT INFORMATION
  Report Type: Spontaneous
  Country: US (occurrence: US)
  Receive Date: 20221208
  Receipt Date: 20230117
  Transmission Date: 20230417
  Serious: Yes (Other)
  Sender: FDA-Public Use
  Company Number: US-BRISTOL-MYERS SQUIBB COMPANY-2022-145156

PATIENT
  Age: 51 Year
  Sex: Male

DRUGS (4)
  1. POMALYST [Suspect]
     Active Substance: POMALIDOMIDE
     Indication: Plasma cell myeloma refractory
     Route: 048
     Dates: start: 20221005, end: 20221220
  2. ONDANSETRON [Concomitant]
     Active Substance: ONDANSETRON
  3. COMPAZINE [Concomitant]
     Active Substance: PROCHLORPERAZINE MALEATE
  4. D E X [DEXAMETHASONE] [Concomitant]
     Dosage: PART OF TREATMENT

REACTIONS (3)
  - Nausea [Unknown]
  - Paraplegia [Unknown]
  - Spinal cord compression [Unknown]
